FAERS Safety Report 20578442 (Version 1)
Quarter: 2022Q1

REPORT INFORMATION
  Report Type: Other
  Country: US (occurrence: None)
  Receive Date: 20220310
  Receipt Date: 20220310
  Transmission Date: 20220423
  Serious: Yes (Other)
  Sender: FDA-Public Use
  Company Number: US-ROCHE-3026416

PATIENT
  Age: 51 Year
  Sex: Female

DRUGS (1)
  1. OMALIZUMAB [Suspect]
     Active Substance: OMALIZUMAB
     Indication: Systemic mastocytosis
     Route: 065

REACTIONS (3)
  - Unevaluable event [Unknown]
  - Respiratory distress [Unknown]
  - Swollen tongue [Unknown]
